FAERS Safety Report 12308943 (Version 1)
Quarter: 2016Q2

REPORT INFORMATION
  Report Type: Spontaneous
  Country: US (occurrence: None)
  Receive Date: 20160426
  Receipt Date: 20160426
  Transmission Date: 20160815
  Serious: Yes (Other)
  Sender: FDA-Public Use
  Company Number: None

PATIENT
  Age: 58 Year
  Sex: Male
  Weight: 68.04 kg

DRUGS (5)
  1. DENTAL DEVICE [Concomitant]
  2. FISH OIL [Concomitant]
     Active Substance: FISH OIL
  3. ACTICLATE [Suspect]
     Active Substance: DOXYCYCLINE HYCLATE
     Indication: ACNE
     Dosage: 1 TABLET(S) TWICE A DAY TAKEN BY MOUTH
     Route: 048
     Dates: start: 20160421, end: 20160422
  4. ACTICLATE [Suspect]
     Active Substance: DOXYCYCLINE HYCLATE
     Indication: INFECTION
     Dosage: 1 TABLET(S) TWICE A DAY TAKEN BY MOUTH
     Route: 048
     Dates: start: 20160421, end: 20160422
  5. MULTI VITAMIN [Concomitant]
     Active Substance: VITAMINS

REACTIONS (3)
  - Inflammation [None]
  - Drug hypersensitivity [None]
  - Erythema [None]

NARRATIVE: CASE EVENT DATE: 20160421
